FAERS Safety Report 15114796 (Version 3)
Quarter: 2022Q2

REPORT INFORMATION
  Report Type: Spontaneous
  Country: PL (occurrence: PL)
  Receive Date: 20180706
  Receipt Date: 20220503
  Transmission Date: 20220720
  Serious: Yes (Hospitalization, Other)
  Sender: FDA-Public Use
  Company Number: None

PATIENT
  Age: 46 Year
  Sex: Male

DRUGS (14)
  1. MYCOPHENOLIC ACID [Suspect]
     Active Substance: MYCOPHENOLIC ACID
     Indication: Immunosuppressant drug therapy
     Dosage: UNK
     Route: 065
  2. MYCOPHENOLIC ACID [Suspect]
     Active Substance: MYCOPHENOLIC ACID
     Indication: Renal transplant
  3. PREDNISONE [Suspect]
     Active Substance: PREDNISONE
     Indication: Immunosuppressant drug therapy
     Dosage: UNK
     Route: 065
  4. PREDNISONE [Suspect]
     Active Substance: PREDNISONE
     Indication: Renal transplant
  5. TACROLIMUS [Suspect]
     Active Substance: TACROLIMUS
     Indication: Immunosuppressant drug therapy
     Dosage: UNK
     Route: 065
  6. TACROLIMUS [Suspect]
     Active Substance: TACROLIMUS
     Indication: Renal transplant
  7. ENVARSUS XR [Suspect]
     Active Substance: TACROLIMUS
     Indication: Immunosuppressant drug therapy
     Dosage: UNK
     Route: 065
  8. COTRIMOXAZOLE [Suspect]
     Active Substance: SULFAMETHOXAZOLE\TRIMETHOPRIM
     Indication: Product used for unknown indication
     Dosage: UNK
     Route: 065
  9. VALGANCICLOVIR [Suspect]
     Active Substance: VALGANCICLOVIR
     Indication: Product used for unknown indication
     Dosage: UNK
     Route: 065
  10. IMIPENEM [Concomitant]
     Active Substance: IMIPENEM
     Indication: Bacterial infection
     Route: 065
  11. CLINDAMYCIN [Concomitant]
     Active Substance: CLINDAMYCIN
     Indication: Bacterial infection
     Route: 065
  12. CLARITHROMYCIN [Concomitant]
     Active Substance: CLARITHROMYCIN
     Indication: Bacterial infection
     Route: 065
  13. CEFTRIAXONE [Concomitant]
     Active Substance: CEFTRIAXONE
     Indication: Bacterial infection
  14. AMOXICILLIN [Concomitant]
     Active Substance: AMOXICILLIN
     Indication: Bacterial infection

REACTIONS (6)
  - Bronchopulmonary aspergillosis [Recovering/Resolving]
  - Escherichia infection [Recovering/Resolving]
  - Bronchoalveolar lavage abnormal [Unknown]
  - Respiratory moniliasis [Recovering/Resolving]
  - Candida infection [Recovering/Resolving]
  - Pneumonia [Recovering/Resolving]
